FAERS Safety Report 20586358 (Version 2)
Quarter: 2022Q1

REPORT INFORMATION
  Report Type: Spontaneous
  Country: US (occurrence: US)
  Receive Date: 20220313
  Receipt Date: 20220316
  Transmission Date: 20220424
  Serious: Yes (Hospitalization, Disabling)
  Sender: FDA-Public Use
  Company Number: US-TEVA-2022-US-2014883

PATIENT
  Age: 54 Year
  Sex: Female
  Weight: 63.05 kg

DRUGS (6)
  1. CLONAZEPAM [Suspect]
     Active Substance: CLONAZEPAM
     Indication: Hyperarousal
     Dosage: 2 MILLIGRAM DAILY;
     Route: 065
     Dates: start: 2012
  2. CLONAZEPAM [Suspect]
     Active Substance: CLONAZEPAM
     Indication: Anxiety
     Dosage: REDUCING HER DOSE BY 7% WEEKLY
     Route: 065
  3. CLONAZEPAM [Suspect]
     Active Substance: CLONAZEPAM
     Indication: Insomnia
     Dosage: INCREASE HER DOSE
     Route: 065
  4. CLONAZEPAM [Suspect]
     Active Substance: CLONAZEPAM
     Dosage: I TITRATED OFF OF IT SLOWLY FOR ABOUT 11 MONTHS
     Dates: start: 2017
  5. CLONAZEPAM [Suspect]
     Active Substance: CLONAZEPAM
     Dosage: TITRATED OFF FOR SAME TIME AND I AM AT IT AGAIN
     Dates: start: 2019
  6. CLONAZEPAM [Suspect]
     Active Substance: CLONAZEPAM
     Route: 065
     Dates: start: 202112

REACTIONS (11)
  - Disability [Not Recovered/Not Resolved]
  - Hospitalisation [Recovered/Resolved]
  - COVID-19 [Recovered/Resolved]
  - Drug titration error [Unknown]
  - Off label use [Unknown]
  - Decreased appetite [Not Recovered/Not Resolved]
  - Weight decreased [Not Recovered/Not Resolved]
  - Influenza [Recovered/Resolved]
  - Drug ineffective [Unknown]
  - Drug tolerance [Not Recovered/Not Resolved]
  - Nervousness [Unknown]

NARRATIVE: CASE EVENT DATE: 20120101
